FAERS Safety Report 5263531-0 (Version None)
Quarter: 2007Q1

REPORT INFORMATION
  Report Type: 
  Country: None (occurrence: None)
  Receive Date: 20070313
  Receipt Date: 20070308
  Transmission Date: 20070707
  Serious: Yes (Other)
  Sender: FDA-Public Use
  Company Number: JP-BRISTOL-MYERS SQUIBB COMPANY-13707161

PATIENT
  Age: 43 Year
  Sex: Male

DRUGS (4)
  1. CISPLATIN [Suspect]
     Indication: BLADDER CANCER
  2. UFT [Suspect]
     Indication: BLADDER CANCER
  3. ADRIAMYCIN PFS [Suspect]
     Indication: BLADDER CANCER
  4. ANGIOTENSIN [Suspect]
     Indication: BLADDER CANCER

REACTIONS (1)
  - POST PROCEDURAL COMPLICATION [None]
